FAERS Safety Report 7449762-X (Version None)
Quarter: 2011Q2

REPORT INFORMATION
  Report Type: 
  Country: None (occurrence: None)
  Receive Date: 20110421
  Receipt Date: 20110411
  Transmission Date: 20111010
  Serious: Yes (Hospitalization, Other)
  Sender: FDA-Public Use
  Company Number: 201104039

PATIENT
  Age: 64 Year
  Sex: Male
  Weight: 107.9561 kg

DRUGS (3)
  1. TESTIM [Suspect]
     Indication: BLOOD TESTOSTERONE ABNORMAL
     Dosage: 50 MG, 1 IN 1 D, TRANSDERMAL
     Route: 062
     Dates: start: 20090101
  2. MICARDIS [Concomitant]
  3. LIPITOR [Concomitant]

REACTIONS (4)
  - DIPLOPIA [None]
  - NYSTAGMUS [None]
  - PROCEDURAL HYPERTENSION [None]
  - ACOUSTIC NEUROMA [None]
